FAERS Safety Report 13038641 (Version 1)
Quarter: 2016Q4

REPORT INFORMATION
  Report Type: Spontaneous
  Country: US (occurrence: US)
  Receive Date: 20161219
  Receipt Date: 20161219
  Transmission Date: 20170207
  Serious: No
  Sender: FDA-Public Use
  Company Number: US-TEVA-715409ACC

PATIENT
  Age: 31 Year
  Sex: Female
  Weight: 54.48 kg

DRUGS (2)
  1. PARAGARD T 380A [Suspect]
     Active Substance: COPPER
     Indication: CONTRACEPTION
     Dates: start: 20151204
  2. MULTIVITAMIN [Concomitant]
     Active Substance: VITAMINS
     Indication: SUPPLEMENTATION THERAPY

REACTIONS (3)
  - Fungal infection [Unknown]
  - Menorrhagia [Unknown]
  - Complication associated with device [Unknown]

NARRATIVE: CASE EVENT DATE: 20151204
